FAERS Safety Report 19773980 (Version 7)
Quarter: 2022Q3

REPORT INFORMATION
  Report Type: Report from Study
  Country: US (occurrence: US)
  Receive Date: 20210831
  Receipt Date: 20220721
  Transmission Date: 20221026
  Serious: Yes (Other)
  Sender: FDA-Public Use
  Company Number: NVSC2021US197024

PATIENT
  Sex: Male

DRUGS (5)
  1. ENTRESTO [Suspect]
     Active Substance: SACUBITRIL\VALSARTAN
     Indication: Product used for unknown indication
     Dosage: 1 DOSAGE FORM, BID (49/51 MG)
     Route: 065
  2. ENTRESTO [Suspect]
     Active Substance: SACUBITRIL\VALSARTAN
     Dosage: 1 DOSAGE FORM, BID (24/26 MG)
     Route: 065
  3. UNSPECIFIED INGREDIENT [Suspect]
     Active Substance: UNSPECIFIED INGREDIENT
     Indication: Product used for unknown indication
     Dosage: 2 DOSAGE FORM
     Route: 065
  4. UNSPECIFIED INGREDIENT [Suspect]
     Active Substance: UNSPECIFIED INGREDIENT
     Dosage: 1 DOSAGE FORM (2 TO 1 PILL)
     Route: 065
  5. VITAMIN B12 [Concomitant]
     Active Substance: CYANOCOBALAMIN
     Indication: Product used for unknown indication
     Dosage: UNK
     Route: 065

REACTIONS (15)
  - Cardiac failure [Unknown]
  - Decreased appetite [Unknown]
  - Weight decreased [Recovering/Resolving]
  - Arthralgia [Unknown]
  - Renal disorder [Not Recovered/Not Resolved]
  - Fatigue [Unknown]
  - Blood potassium increased [Unknown]
  - Hypersensitivity [Unknown]
  - Cough [Unknown]
  - Dizziness [Unknown]
  - Throat irritation [Recovering/Resolving]
  - Vitamin B12 decreased [Unknown]
  - Red blood cell count decreased [Unknown]
  - Dyspnoea [Not Recovered/Not Resolved]
  - Wrong technique in product usage process [Unknown]
